FAERS Safety Report 8546982-8 (Version None)
Quarter: 2012Q3

REPORT INFORMATION
  Report Type: 
  Country: None (occurrence: None)
  Receive Date: 20120727
  Receipt Date: 20120305
  Transmission Date: 20120928
  Serious: No
  Sender: FDA-Public Use
  Company Number: US-ASTRAZENECA-2012SE15414

PATIENT
  Sex: Male

DRUGS (3)
  1. SEROQUEL [Suspect]
     Indication: BIPOLAR I DISORDER
     Route: 048
  2. ATIVAN [Concomitant]
  3. SEROQUEL [Suspect]
     Route: 048

REACTIONS (2)
  - NASAL DRYNESS [None]
  - DRY MOUTH [None]
